FAERS Safety Report 6811206-6 (Version None)
Quarter: 2010Q2

REPORT INFORMATION
  Report Type: 
  Country: None (occurrence: None)
  Receive Date: 20100630
  Receipt Date: 20090807
  Transmission Date: 20101027
  Serious: No
  Sender: FDA-Public Use
  Company Number: US-AMGEN-KDL359547

PATIENT
  Sex: Male

DRUGS (2)
  1. PROCRIT [Suspect]
     Indication: RENAL FAILURE ACUTE
     Route: 058
  2. UNSPECIFIED MEDICATION [Concomitant]
     Route: 048

REACTIONS (1)
  - DRUG INEFFECTIVE [None]
